FAERS Safety Report 6998952-9 (Version None)
Quarter: 2010Q3

REPORT INFORMATION
  Report Type: 
  Country: None (occurrence: None)
  Receive Date: 20100920
  Receipt Date: 20100701
  Transmission Date: 20110219
  Serious: Yes (Other)
  Sender: FDA-Public Use
  Company Number: US-ASTRAZENECA-2007UW21670

PATIENT
  Age: 555 Month
  Sex: Female
  Weight: 125.2 kg

DRUGS (19)
  1. SEROQUEL [Suspect]
     Indication: DEPRESSION
     Dosage: 100 MG-300 MG
     Route: 048
     Dates: start: 19990101, end: 20050601
  2. SEROQUEL [Suspect]
     Indication: BIPOLAR DISORDER
     Dosage: 100 MG-300 MG
     Route: 048
     Dates: start: 19990101, end: 20050601
  3. SEROQUEL [Suspect]
     Dosage: 100-300 MG
     Route: 048
     Dates: start: 20030411
  4. SEROQUEL [Suspect]
     Dosage: 100-300 MG
     Route: 048
     Dates: start: 20030411
  5. LEXAPRO [Concomitant]
     Dosage: 10 MG TO 20 MG
     Route: 065
  6. LORAZEPAM [Concomitant]
     Route: 065
  7. XANAX [Concomitant]
     Dosage: 0.5 MG TO 1 MG
     Route: 065
  8. ESKALITH [Concomitant]
     Route: 065
  9. RISPERDAL [Concomitant]
     Indication: BIPOLAR DISORDER
     Route: 065
     Dates: start: 20050101, end: 20070101
  10. RISPERDAL [Concomitant]
     Indication: DEPRESSION
     Route: 065
     Dates: start: 20050101, end: 20070101
  11. HYDROCODONE [Concomitant]
     Route: 065
  12. AMBIEN [Concomitant]
     Route: 065
  13. PROZAC [Concomitant]
     Route: 065
  14. ZOLOFT [Concomitant]
     Route: 065
  15. RESTORIL [Concomitant]
     Route: 065
  16. REMERON [Concomitant]
     Route: 065
  17. LOPID [Concomitant]
     Dates: start: 20050422
  18. ABILIFY [Concomitant]
     Dates: start: 20070601, end: 20070701
  19. DEPAKOTE [Concomitant]
     Dosage: 500-1500 MG
     Dates: start: 19970101

REACTIONS (15)
  - ADVERSE DRUG REACTION [None]
  - BACK DISORDER [None]
  - BIPOLAR DISORDER [None]
  - BLOOD CHOLESTEROL INCREASED [None]
  - BLOOD TRIGLYCERIDES INCREASED [None]
  - DIABETIC COMPLICATION [None]
  - DIARRHOEA [None]
  - DYSPNOEA [None]
  - HYPERLIPIDAEMIA [None]
  - HYPERTENSION [None]
  - NERVE INJURY [None]
  - OEDEMA [None]
  - SLEEP APNOEA SYNDROME [None]
  - SUICIDAL IDEATION [None]
  - TYPE 2 DIABETES MELLITUS [None]
